FAERS Safety Report 6399196-4 (Version None)
Quarter: 2009Q4

REPORT INFORMATION
  Report Type: 
  Country: None (occurrence: None)
  Receive Date: 20091008
  Receipt Date: 20090923
  Transmission Date: 20100525
  Serious: Yes (Death, Other)
  Sender: FDA-Public Use
  Company Number: 2009002911

PATIENT
  Age: 70 Year
  Sex: Female

DRUGS (1)
  1. TARCEVA [Suspect]
     Indication: LUNG NEOPLASM MALIGNANT
     Dosage: MG, ORAL
     Route: 048
     Dates: start: 20090724

REACTIONS (3)
  - CELLULITIS [None]
  - SEPTIC SHOCK [None]
  - VOMITING [None]
